FAERS Safety Report 17699311 (Version 2)
Quarter: 2020Q2

REPORT INFORMATION
  Report Type: Spontaneous
  Country: US (occurrence: US)
  Receive Date: 20200423
  Receipt Date: 20200429
  Transmission Date: 20200714
  Serious: Yes (Hospitalization, Other)
  Sender: FDA-Public Use
  Company Number: NVSC2020US107451

PATIENT

DRUGS (1)
  1. ZOLGENSMA [Suspect]
     Active Substance: ONASEMNOGENE ABEPARVOVEC-XIOI
     Indication: SPINAL MUSCULAR ATROPHY
     Dosage: UNK, ONCE/SINGLE
     Route: 042

REACTIONS (7)
  - Necrosis [Unknown]
  - Purpura [Unknown]
  - Rash [Unknown]
  - Respiratory failure [Unknown]
  - Skin plaque [Unknown]
  - Papule [Unknown]
  - Thrombosis [Unknown]

NARRATIVE: CASE EVENT DATE: 20200417
